FAERS Safety Report 9290018 (Version 1)
Quarter: 2013Q2

REPORT INFORMATION
  Report Type: Spontaneous
  Country: US (occurrence: None)
  Receive Date: 20130514
  Receipt Date: 20130514
  Transmission Date: 20140414
  Serious: Yes (Other)
  Sender: FDA-Public Use
  Company Number: None

PATIENT
  Age: 60 Year
  Sex: Female

DRUGS (3)
  1. PRAVASTATIN [Suspect]
     Indication: HYPERLIPIDAEMIA
     Dates: start: 20120204, end: 20120209
  2. METFORMIN [Concomitant]
  3. ASA [Concomitant]

REACTIONS (11)
  - Drug-induced liver injury [None]
  - Fatigue [None]
  - Nausea [None]
  - Perivascular dermatitis [None]
  - Rash pruritic [None]
  - Aspartate aminotransferase increased [None]
  - Alanine aminotransferase increased [None]
  - Blood alkaline phosphatase increased [None]
  - Eosinophilia [None]
  - Acarodermatitis [None]
  - Anaphylactic reaction [None]
